FAERS Safety Report 9763562 (Version 2)
Quarter: 2015Q2

REPORT INFORMATION
  Report Type: Spontaneous
  Country: IT (occurrence: IT)
  Receive Date: 20131216
  Receipt Date: 20150519
  Transmission Date: 20150821
  Serious: Yes (Death)
  Sender: FDA-Public Use
  Company Number: PHHY2013IT144698

PATIENT
  Age: 73 Year
  Sex: Male

DRUGS (6)
  1. CAPECITABINE. [Concomitant]
     Active Substance: CAPECITABINE
     Indication: MALIGNANT NEOPLASM PROGRESSION
  2. FOLINIC ACID [Concomitant]
     Active Substance: LEUCOVORIN
     Indication: ADENOCARCINOMA OF COLON
     Route: 065
     Dates: start: 201211
  3. OXALIPLATIN. [Suspect]
     Active Substance: OXALIPLATIN
     Indication: MALIGNANT NEOPLASM PROGRESSION
     Route: 042
     Dates: start: 201211
  4. OXALIPLATIN. [Suspect]
     Active Substance: OXALIPLATIN
     Indication: ADENOCARCINOMA OF COLON
  5. CAPECITABINE. [Concomitant]
     Active Substance: CAPECITABINE
     Indication: ADENOCARCINOMA OF COLON
     Route: 065
     Dates: start: 201211
  6. FOLINIC ACID [Concomitant]
     Active Substance: LEUCOVORIN
     Indication: MALIGNANT NEOPLASM PROGRESSION

REACTIONS (14)
  - Haemolytic anaemia [Fatal]
  - Anaemia [Fatal]
  - Pyrexia [Fatal]
  - Thrombocytopenia [Fatal]
  - Oxygen saturation decreased [Fatal]
  - Platelet count decreased [Fatal]
  - Renal failure [Fatal]
  - Renal impairment [Fatal]
  - Dyspnoea [Fatal]
  - Heart rate increased [Fatal]
  - Haemoglobin decreased [Fatal]
  - Seizure [Fatal]
  - Blood pressure increased [Fatal]
  - Thrombotic thrombocytopenic purpura [Fatal]
